FAERS Safety Report 4377562-6 (Version None)
Quarter: 2004Q2

REPORT INFORMATION
  Report Type: 
  Country: None (occurrence: None)
  Receive Date: 20040609
  Receipt Date: 20040429
  Transmission Date: 20050107
  Serious: No
  Sender: FDA-Public Use
  Company Number: PHEH2004US00883

PATIENT
  Age: 60 Year
  Sex: Male

DRUGS (3)
  1. GLEEVEC [Suspect]
     Indication: CHRONIC MYELOID LEUKAEMIA
     Dosage: 400 MG, QD; ORAL
     Route: 048
     Dates: start: 20020101, end: 20031220
  2. GLEEVEC [Suspect]
     Indication: CHRONIC MYELOID LEUKAEMIA
     Dosage: 400 MG, QD; ORAL
     Route: 048
     Dates: start: 20031220
  3. SYNTHROID [Concomitant]

REACTIONS (2)
  - NAUSEA [None]
  - RESTLESSNESS [None]
